FAERS Safety Report 9351394 (Version 1)
Quarter: 2013Q2

REPORT INFORMATION
  Report Type: Spontaneous
  Country: FR (occurrence: FR)
  Receive Date: 20130617
  Receipt Date: 20130617
  Transmission Date: 20140414
  Serious: Yes (Disabling)
  Sender: FDA-Public Use
  Company Number: FR-BAYER-2013-072906

PATIENT
  Age: 38 Year
  Sex: Female

DRUGS (2)
  1. QLAIRA [Suspect]
     Dosage: UNK
     Route: 048
  2. DERINOX [CETRIMONIUM BROMIDE,NAPHAZOL NITR,PHENYLEPHR HCL,PREDNISO [Suspect]
     Indication: NASAL OBSTRUCTION
     Dosage: 2 DF, QD
     Route: 045
     Dates: start: 20130418, end: 20130502

REACTIONS (2)
  - Blindness [Not Recovered/Not Resolved]
  - Retinal ischaemia [Not Recovered/Not Resolved]
